FAERS Safety Report 12935560 (Version 1)
Quarter: 2016Q4

REPORT INFORMATION
  Report Type: Spontaneous
  Country: US (occurrence: US)
  Receive Date: 20161114
  Receipt Date: 20161114
  Transmission Date: 20170207
  Serious: No
  Sender: FDA-Public Use
  Company Number: US-PAR PHARMACEUTICAL, INC-2016SCPR015547

PATIENT

DRUGS (3)
  1. ACCOLATE [Suspect]
     Active Substance: ZAFIRLUKAST
     Dosage: UNK UNK, UNKNOWN
     Route: 048
  2. ACCOLATE [Suspect]
     Active Substance: ZAFIRLUKAST
     Indication: RESPIRATION ABNORMAL
     Dosage: UNK UNK, UNKNOWN
     Route: 048
     Dates: start: 201606, end: 201606
  3. ACCOLATE [Suspect]
     Active Substance: ZAFIRLUKAST
     Dosage: UNK UNK, UNKNOWN
     Route: 048
     Dates: start: 2014

REACTIONS (4)
  - Malaise [Recovered/Resolved]
  - Product quality issue [Unknown]
  - Adverse reaction [Recovered/Resolved]
  - Drug ineffective [Recovered/Resolved]

NARRATIVE: CASE EVENT DATE: 201606
